FAERS Safety Report 17022386 (Version 9)
Quarter: 2020Q3

REPORT INFORMATION
  Report Type: Report from Study
  Country: US (occurrence: US)
  Receive Date: 20191112
  Receipt Date: 20200825
  Transmission Date: 20201102
  Serious: Yes (Hospitalization, Other)
  Sender: FDA-Public Use
  Company Number: US-ACTELION-A-NJ2017-161812

PATIENT
  Sex: Female
  Weight: 88.44 kg

DRUGS (21)
  1. AMILORIDE HCL [Concomitant]
     Active Substance: AMILORIDE HYDROCHLORIDE
     Dosage: UNK
     Dates: start: 20190627
  2. ANORO ELLIPTA [Concomitant]
     Active Substance: UMECLIDINIUM BROMIDE\VILANTEROL TRIFENATATE
     Dosage: UNK
     Dates: start: 20180611
  3. MS CONTIN [Concomitant]
     Active Substance: MORPHINE SULFATE
     Dosage: UNK
     Dates: start: 20120120
  4. PROAIR HFA [Concomitant]
     Active Substance: ALBUTEROL SULFATE
     Dosage: UNK
     Dates: start: 20180611
  5. REVATIO [Concomitant]
     Active Substance: SILDENAFIL CITRATE
  6. ACYCLOVIR [ACICLOVIR] [Concomitant]
     Active Substance: ACYCLOVIR
     Dosage: UNK
     Dates: start: 20200326
  7. OPSUMIT [Suspect]
     Active Substance: MACITENTAN
     Indication: PULMONARY ARTERIAL HYPERTENSION
     Dosage: 10 MG, QD
     Route: 048
  8. OPSUMIT [Suspect]
     Active Substance: MACITENTAN
     Dosage: 10 MG, QD
     Route: 048
     Dates: start: 20171006
  9. BUMETANIDE. [Concomitant]
     Active Substance: BUMETANIDE
     Dosage: UNK
     Dates: start: 20200121
  10. OXYGEN. [Concomitant]
     Active Substance: OXYGEN
     Dosage: UNK
     Dates: start: 20171205
  11. ALBUTEROL SULFATE. [Concomitant]
     Active Substance: ALBUTEROL SULFATE
     Dosage: UNK
     Dates: start: 20171101
  12. FISH OIL [Concomitant]
     Active Substance: FISH OIL
     Dosage: UNK
     Dates: start: 20130729
  13. TIZANIDINE HCL [Concomitant]
     Active Substance: TIZANIDINE HYDROCHLORIDE
     Dosage: UNK
     Dates: start: 20130621
  14. OMEPRAZOLE. [Concomitant]
     Active Substance: OMEPRAZOLE
     Dosage: UNK
     Dates: start: 20130308
  15. METOLAZONE. [Concomitant]
     Active Substance: METOLAZONE
     Dosage: UNK
     Dates: start: 20200420
  16. POTASSIUM CHLORIDE. [Concomitant]
     Active Substance: POTASSIUM CHLORIDE
     Dosage: UNK
     Dates: start: 20200220
  17. VITAMIN D NOS [Concomitant]
     Active Substance: VITAMIN D NOS
     Dosage: UNK
  18. DICYCLOMINE HCL [Concomitant]
     Active Substance: DICYCLOMINE HYDROCHLORIDE
     Dosage: UNK
     Dates: start: 20130701
  19. SPIRONOLACTONE. [Concomitant]
     Active Substance: SPIRONOLACTONE
     Dosage: UNK
     Dates: start: 20200220
  20. VITAMIN C?500 COMPLEX [Concomitant]
     Dosage: UNK
     Dates: start: 20130729
  21. ZOLOFT [Concomitant]
     Active Substance: SERTRALINE HYDROCHLORIDE
     Dosage: UNK
     Dates: start: 20130729

REACTIONS (38)
  - Fall [Unknown]
  - Cholecystectomy [Unknown]
  - Cerebrovascular accident [Unknown]
  - Skin exfoliation [Unknown]
  - Tachycardia paroxysmal [Unknown]
  - Cholelithiasis [Unknown]
  - Dizziness [Unknown]
  - Exercise tolerance decreased [Unknown]
  - Pleural effusion [Unknown]
  - Heart rate increased [Not Recovered/Not Resolved]
  - Oedema [Unknown]
  - Seizure [Unknown]
  - Anaemia [Unknown]
  - Nausea [Unknown]
  - Migraine [Unknown]
  - Pancreatic disorder [Unknown]
  - Lower limb fracture [Unknown]
  - Fracture [Unknown]
  - Syncope [Unknown]
  - Sinusitis [Not Recovered/Not Resolved]
  - Dyspnoea [Not Recovered/Not Resolved]
  - Condition aggravated [Unknown]
  - Barrel chest [Unknown]
  - Depressed mood [Unknown]
  - Fractured sacrum [Unknown]
  - Pain [Unknown]
  - Loss of consciousness [Unknown]
  - Fluid retention [Unknown]
  - Malaise [Unknown]
  - Pulmonary arterial pressure increased [Unknown]
  - Oedema peripheral [Unknown]
  - Postural orthostatic tachycardia syndrome [Unknown]
  - Influenza [Unknown]
  - Fatigue [Unknown]
  - Nasal congestion [Unknown]
  - Pancreatitis [Unknown]
  - Weight increased [Unknown]
  - Chest pain [Not Recovered/Not Resolved]
